FAERS Safety Report 8817023 (Version 1)
Quarter: 2012Q4

REPORT INFORMATION
  Report Type: Spontaneous
  Country: AT (occurrence: None)
  Receive Date: 20121002
  Receipt Date: 20121002
  Transmission Date: 20130627
  Serious: Yes (Other)
  Sender: FDA-Public Use
  Company Number: 2010EU005814

PATIENT
  Age: 78 Year
  Sex: Male
  Weight: 95 kg

DRUGS (9)
  1. SOLIFENACIN [Suspect]
     Indication: OVERACTIVE BLADDER
     Dosage: 5 mg, UID/QD, Oral
     Route: 048
     Dates: start: 20100322, end: 20100608
  2. ACEMIN (CHLORPROMAZINE HYDROCHLORIDE) [Concomitant]
  3. AMLODIPIN (AMLODIPINE) [Concomitant]
  4. EBRANTIL (URAPIDIL) [Concomitant]
  5. ITERIUM (RILMENIDINE) [Concomitant]
  6. SELOKEN (HYDROCHLOROTHIAZIDE) [Concomitant]
  7. PLAVIX (CLOPIDOGREL) [Concomitant]
  8. SIMVASTATIN (SIMVASTATIN) [Concomitant]
  9. DIAMICRON MR (GLICLAZIDE) [Concomitant]

REACTIONS (1)
  - Circulatory collapse [None]
